FAERS Safety Report 23777434 (Version 1)
Quarter: 2024Q2

REPORT INFORMATION
  Report Type: Spontaneous
  Country: DE (occurrence: DE)
  Receive Date: 20240424
  Receipt Date: 20240424
  Transmission Date: 20240715
  Serious: Yes (Hospitalization, Other)
  Sender: FDA-Public Use
  Company Number: DE-EMA-DD-20240327-7482831-122717

PATIENT
  Age: 34 Year
  Sex: Male

DRUGS (10)
  1. MYCOPHENOLATE MOFETIL [Suspect]
     Active Substance: MYCOPHENOLATE MOFETIL
     Indication: Product used for unknown indication
  2. TACROLIMUS [Suspect]
     Active Substance: TACROLIMUS
     Indication: Immunosuppressant drug therapy
  3. MOLNUPIRAVIR [Suspect]
     Active Substance: MOLNUPIRAVIR
     Indication: Immunosuppressant drug therapy
  4. SOTROVIMAB [Suspect]
     Active Substance: SOTROVIMAB
     Indication: Immunosuppressant drug therapy
  5. PREDNISONE [Suspect]
     Active Substance: PREDNISONE
     Indication: Immunosuppressant drug therapy
  6. REMDESIVIR [Suspect]
     Active Substance: REMDESIVIR
     Indication: Immunosuppressant drug therapy
  7. RITUXIMAB [Suspect]
     Active Substance: RITUXIMAB
     Indication: ABO incompatibility
  8. THYMOGLOBULIN [Concomitant]
     Active Substance: LAPINE T-LYMPHOCYTE IMMUNE GLOBULIN
     Dosage: 300 MG CUMULATIVE
  9. PREDNISOLONE [Concomitant]
     Active Substance: PREDNISOLONE
     Dosage: CUMULATIVE DOSE OF 1 G OVER THREE DAYS
  10. HUMAN IMMUNOGLOBULIN G [Concomitant]
     Active Substance: HUMAN IMMUNOGLOBULIN G
     Dosage: RENEWED IVIG

REACTIONS (3)
  - COVID-19 pneumonia [Recovered/Resolved]
  - Renal transplant failure [Unknown]
  - Immunosuppression [Unknown]
